FAERS Safety Report 9987629 (Version 3)
Quarter: 2014Q2

REPORT INFORMATION
  Report Type: Spontaneous
  Country: US (occurrence: US)
  Receive Date: 20140307
  Receipt Date: 20140415
  Transmission Date: 20141212
  Serious: Yes (Other)
  Sender: FDA-Public Use
  Company Number: US-AMGEN-USASP2014009332

PATIENT
  Age: 67 Year
  Sex: Male
  Weight: 94.33 kg

DRUGS (7)
  1. ENBREL [Suspect]
     Indication: RHEUMATOID ARTHRITIS
     Dosage: 50 MG, QWK
     Route: 058
     Dates: start: 20140131, end: 20140224
  2. ENBREL [Suspect]
     Indication: ANKYLOSING SPONDYLITIS
  3. ZYRTEC [Suspect]
     Indication: INJECTION SITE REACTION
     Dosage: 10 MG, QD
     Route: 048
  4. ZYRTEC [Suspect]
     Indication: RASH GENERALISED
  5. ZYRTEC [Suspect]
     Indication: GENERALISED ERYTHEMA
  6. PREDNISONE [Concomitant]
     Dosage: 2.5 MG, QD
     Route: 048
     Dates: start: 2010
  7. PREDNISONE [Concomitant]
     Dosage: 20 MG, QD
     Route: 048
     Dates: start: 201401

REACTIONS (12)
  - Polymyalgia rheumatica [Unknown]
  - Rash generalised [Recovered/Resolved]
  - Somnolence [Recovered/Resolved]
  - Swelling [Not Recovered/Not Resolved]
  - Generalised erythema [Unknown]
  - Injection site rash [Not Recovered/Not Resolved]
  - Injection site warmth [Recovered/Resolved]
  - Injection site erythema [Not Recovered/Not Resolved]
  - Injection site bruising [Recovered/Resolved]
  - Injection site reaction [Not Recovered/Not Resolved]
  - Injection site pruritus [Not Recovered/Not Resolved]
  - Injection site swelling [Not Recovered/Not Resolved]
